FAERS Safety Report 6186423-1 (Version None)
Quarter: 2009Q2

REPORT INFORMATION
  Report Type: 
  Country: None (occurrence: None)
  Receive Date: 20090511
  Receipt Date: 20090501
  Transmission Date: 20091009
  Serious: Yes (Other)
  Sender: FDA-Public Use
  Company Number: US-AMGEN-QUU329461

PATIENT
  Sex: Female
  Weight: 63.6 kg

DRUGS (4)
  1. ENBREL [Suspect]
     Indication: RHEUMATOID ARTHRITIS
     Route: 058
     Dates: start: 20080730
  2. PAXIL [Concomitant]
     Dates: start: 20080909
  3. ARAVA [Concomitant]
     Dates: start: 20090417
  4. PREDNISONE [Concomitant]
     Dates: start: 20090417

REACTIONS (12)
  - ARTHRALGIA [None]
  - BACK INJURY [None]
  - CERVICAL SPINE FLATTENING [None]
  - JOINT SWELLING [None]
  - LOOSE TOOTH [None]
  - MOUTH INJURY [None]
  - MUSCULOSKELETAL STIFFNESS [None]
  - NECK INJURY [None]
  - OEDEMA PERIPHERAL [None]
  - PAIN IN EXTREMITY [None]
  - ROAD TRAFFIC ACCIDENT [None]
  - SPINE MALFORMATION [None]
